FAERS Safety Report 18571709 (Version 1)
Quarter: 2020Q4

REPORT INFORMATION
  Report Type: Spontaneous
  Country: US (occurrence: US)
  Receive Date: 20201202
  Receipt Date: 20201202
  Transmission Date: 20210114
  Serious: No
  Sender: FDA-Public Use
  Company Number: US-VERTEX PHARMACEUTICALS-2020-023296

PATIENT
  Age: 25 Year
  Sex: Female

DRUGS (17)
  1. TRIKAFTA [Suspect]
     Active Substance: ELEXACAFTOR\IVACAFTOR\TEZACAFTOR
     Indication: CYSTIC FIBROSIS
     Dosage: (100 MG ELEXACAFTOR/50 MG TEZACAFTOR/75 MG IVACAFTOR; 150 MG IVACAFTOR) TABS, FREQ UNK
     Route: 048
  2. CIPROFLOXACIN HCL [Concomitant]
     Active Substance: CIPROFLOXACIN HYDROCHLORIDE
  3. PHYTONADIONE. [Concomitant]
     Active Substance: PHYTONADIONE
  4. VITAMIN D [COLECALCIFEROL] [Concomitant]
     Active Substance: CHOLECALCIFEROL
  5. ALBUTEROL SULFATE. [Concomitant]
     Active Substance: ALBUTEROL SULFATE
  6. DOXYCYCLINE MONOHYDRATE [Concomitant]
     Active Substance: DOXYCYCLINE
  7. ONDANSETRON ODT [Concomitant]
     Active Substance: ONDANSETRON
  8. OMEPRAZOLE. [Concomitant]
     Active Substance: OMEPRAZOLE
  9. PROMETHAZINE HYDROCHLORIDE. [Concomitant]
     Active Substance: PROMETHAZINE HYDROCHLORIDE
  10. SODIUM CHLORIDE. [Concomitant]
     Active Substance: SODIUM CHLORIDE
  11. PULMOZYME [Concomitant]
     Active Substance: DORNASE ALFA
  12. AZTREONAM LYSINE [Suspect]
     Active Substance: AZTREONAM LYSINE
     Indication: CYSTIC FIBROSIS
  13. PROVENTIL HFA [SALBUTAMOL] [Concomitant]
  14. REMERON [Concomitant]
     Active Substance: MIRTAZAPINE
  15. CETIRIZINE HYDROCHLORIDE. [Concomitant]
     Active Substance: CETIRIZINE HYDROCHLORIDE
  16. CREON [Concomitant]
     Active Substance: PANCRELIPASE AMYLASE\PANCRELIPASE LIPASE\PANCRELIPASE PROTEASE
  17. TOBRAMYCIN. [Concomitant]
     Active Substance: TOBRAMYCIN

REACTIONS (3)
  - Maternal exposure during pregnancy [Unknown]
  - Weight increased [Unknown]
  - Product dose omission issue [Recovered/Resolved]
